FAERS Safety Report 5624418-4 (Version None)
Quarter: 2008Q1

REPORT INFORMATION
  Report Type: 
  Country: None (occurrence: None)
  Receive Date: 20080213
  Receipt Date: 20080130
  Transmission Date: 20080703
  Serious: Yes (Hospitalization)
  Sender: FDA-Public Use
  Company Number: ES-AMGEN-UK263705

PATIENT
  Age: 3 Year
  Sex: Male

DRUGS (2)
  1. KINERET [Suspect]
     Indication: JUVENILE ARTHRITIS
     Route: 065
  2. CORTICOSTEROIDS [Concomitant]

REACTIONS (1)
  - PNEUMONITIS [None]
